FAERS Safety Report 21194202 (Version 1)
Quarter: 2022Q3

REPORT INFORMATION
  Report Type: Spontaneous
  Country: US (occurrence: None)
  Receive Date: 20220809
  Receipt Date: 20220809
  Transmission Date: 20221027
  Serious: Yes (Other)
  Sender: FDA-Public Use
  Company Number: None

PATIENT
  Age: 65 Year
  Sex: Male
  Weight: 107.1 kg

DRUGS (12)
  1. PAXLOVID [Suspect]
     Active Substance: NIRMATRELVIR\RITONAVIR
     Indication: COVID-19
     Dosage: FREQUENCY : TWICE A DAY;
     Route: 048
     Dates: start: 20220725, end: 20220729
  2. LOSARTAN [Concomitant]
     Active Substance: LOSARTAN
  3. FINASTERIDE [Concomitant]
     Active Substance: FINASTERIDE
  4. METFORMIN [Concomitant]
     Active Substance: METFORMIN HYDROCHLORIDE
  5. trazodone (held) [Concomitant]
  6. OMEPRAZOLE [Concomitant]
     Active Substance: OMEPRAZOLE
  7. tamsulosin (held) [Concomitant]
  8. DIPHENHYDRAMINE [Concomitant]
     Active Substance: DIPHENHYDRAMINE
  9. KETOTIFEN [Concomitant]
     Active Substance: KETOTIFEN
  10. LORATADINE [Concomitant]
     Active Substance: LORATADINE
  11. SPIRONOLACTONE [Concomitant]
     Active Substance: SPIRONOLACTONE
  12. amlodipine (dose decreased during course) [Concomitant]

REACTIONS (4)
  - COVID-19 [None]
  - Headache [None]
  - Oropharyngeal pain [None]
  - Dyspnoea exertional [None]

NARRATIVE: CASE EVENT DATE: 20220806
